FAERS Safety Report 5565192-X (Version None)
Quarter: 2007Q4

REPORT INFORMATION
  Report Type: 
  Country: None (occurrence: None)
  Receive Date: 20071218
  Receipt Date: 20071204
  Transmission Date: 20080405
  Serious: Yes (Other)
  Sender: FDA-Public Use
  Company Number: FR-BAYER-200717042GPV

PATIENT
  Age: 41 Year
  Sex: Female
  Weight: 70 kg

DRUGS (2)
  1. MIRENA [Suspect]
     Indication: MENORRHAGIA
     Dosage: UNIT DOSE: 20 ?G/D
     Route: 015
     Dates: start: 20010101, end: 20050101
  2. MIRENA [Suspect]
     Dosage: UNIT DOSE: 20 ?G/D
     Route: 015
     Dates: start: 20050101

REACTIONS (1)
  - BREAST CANCER [None]
